FAERS Safety Report 19655630 (Version 1)
Quarter: 2021Q3

REPORT INFORMATION
  Report Type: Spontaneous
  Country: NO (occurrence: NO)
  Receive Date: 20210804
  Receipt Date: 20210804
  Transmission Date: 20211014
  Serious: Yes (Hospitalization)
  Sender: FDA-Public Use
  Company Number: NVSC2021NO165987

PATIENT
  Age: 45 Year
  Sex: Male

DRUGS (2)
  1. LAMICTAL [Concomitant]
     Active Substance: LAMOTRIGINE
     Indication: BIPOLAR II DISORDER
     Dosage: 200 MG, QD
     Route: 048
     Dates: start: 202011
  2. RITALIN [Suspect]
     Active Substance: METHYLPHENIDATE HYDROCHLORIDE
     Indication: ATTENTION DEFICIT HYPERACTIVITY DISORDER
     Dosage: UNK (VARYING DOSAGE, BUT UP TO 60 MG)
     Route: 048
     Dates: start: 20210101, end: 20210703

REACTIONS (5)
  - Suicidal behaviour [Recovered/Resolved]
  - Histrionic personality disorder [Recovered/Resolved]
  - Affect lability [Recovered/Resolved]
  - Egocentrism [Recovered/Resolved]
  - Suicidal ideation [Recovered/Resolved]

NARRATIVE: CASE EVENT DATE: 20210107
